FAERS Safety Report 24182066 (Version 3)
Quarter: 2025Q1

REPORT INFORMATION
  Report Type: Report from Study
  Country: GB (occurrence: GB)
  Receive Date: 20240807
  Receipt Date: 20250205
  Transmission Date: 20250409
  Serious: Yes (Other)
  Sender: CELLTRION
  Company Number: GB-CELLTRION INC.-2024GB018544

PATIENT

DRUGS (2)
  1. INFLIXIMAB-DYYB [Suspect]
     Active Substance: INFLIXIMAB-DYYB
     Indication: Crohn^s disease
     Route: 058
     Dates: start: 202212
  2. INFLIXIMAB-DYYB [Suspect]
     Active Substance: INFLIXIMAB-DYYB
     Route: 058
     Dates: start: 202301

REACTIONS (8)
  - Crohn^s disease [Unknown]
  - Deep vein thrombosis [Unknown]
  - Burning sensation [Unknown]
  - Depression [Unknown]
  - Accidental exposure to product [Unknown]
  - Exposure via skin contact [Unknown]
  - Loss of personal independence in daily activities [Unknown]
  - Device malfunction [Unknown]

NARRATIVE: CASE EVENT DATE: 20250131
